FAERS Safety Report 6117492-2 (Version None)
Quarter: 2009Q1

REPORT INFORMATION
  Report Type: 
  Country: None (occurrence: None)
  Receive Date: 20090314
  Receipt Date: 20090119
  Transmission Date: 20090719
  Serious: No
  Sender: FDA-Public Use
  Company Number: US-ABBOTT-09P-163-0498713-00

PATIENT
  Sex: Female
  Weight: 59.928 kg

DRUGS (2)
  1. HUMIRA [Suspect]
     Indication: CROHN'S DISEASE
     Dosage: DAY 1
     Dates: start: 20090114
  2. HUMIRA [Suspect]

REACTIONS (2)
  - NASAL CONGESTION [None]
  - PRODUCTIVE COUGH [None]
